FAERS Safety Report 5478597-2 (Version None)
Quarter: 2007Q4

REPORT INFORMATION
  Report Type: 
  Country: None (occurrence: None)
  Receive Date: 20071005
  Receipt Date: 20070928
  Transmission Date: 20080405
  Serious: Yes (Life-Threatening)
  Sender: FDA-Public Use
  Company Number: GB-ELI_LILLY_AND_COMPANY-GB200707006757

PATIENT
  Sex: Male
  Weight: 70 kg

DRUGS (15)
  1. XIGRIS [Suspect]
     Indication: LEGIONELLA INFECTION
     Dosage: 1.68 MG, EVERY HOUR
     Route: 042
     Dates: start: 20070727, end: 20070728
  2. CLARITHROMYCIN [Concomitant]
     Indication: PNEUMONIA
     Dosage: 500 UNK, UNKNOWN
     Route: 065
     Dates: start: 20070724
  3. CARBAMAZEPINE [Concomitant]
     Indication: EPILEPSY
     Dosage: 400 UNK, UNKNOWN
     Route: 065
     Dates: start: 20070724
  4. SODIUM CHLORIDE 0.9% [Concomitant]
     Indication: PNEUMONIA
     Dosage: UNK, UNKNOWN
     Route: 065
     Dates: start: 20070724
  5. SALBUTAMOL [Concomitant]
     Indication: PNEUMONIA
     Dosage: 5 UNK, UNKNOWN
     Route: 065
     Dates: start: 20070724
  6. PARACETAMOL [Concomitant]
     Indication: PAIN
     Dosage: UNK, UNKNOWN
     Route: 065
     Dates: start: 20070724
  7. HYDROCORTISONE [Concomitant]
     Indication: SEPSIS
     Dosage: UNK, UNKNOWN
     Route: 065
     Dates: start: 20070724
  8. RANITIDINE HCL [Concomitant]
     Indication: PROPHYLAXIS AGAINST GASTROINTESTINAL ULCER
     Dosage: 50 UNK, UNKNOWN
     Route: 065
     Dates: start: 20070724
  9. RIFAMPICIN [Concomitant]
     Indication: PNEUMONIA
     Dosage: 600 UNK, UNKNOWN
     Route: 065
     Dates: start: 20070726
  10. NORADRENALINE [Concomitant]
     Indication: SEPSIS
     Dosage: UNK, UNKNOWN
     Route: 065
     Dates: start: 20070724
  11. MIDAZOLAM HCL [Concomitant]
     Indication: SEDATION
     Dosage: UNK, UNKNOWN
     Route: 065
     Dates: start: 20070724
  12. MORPHINE [Concomitant]
     Indication: SEDATION
     Dosage: UNK, UNKNOWN
     Route: 065
     Dates: start: 20070724
  13. ACTRAPID [Concomitant]
     Indication: SEPSIS
     Dosage: UNK, UNKNOWN
     Route: 065
     Dates: start: 20070724
  14. FLOLAN [Concomitant]
     Indication: HAEMODIALYSIS
     Dosage: UNK, UNKNOWN
     Route: 065
     Dates: start: 20070724, end: 20070726
  15. VASOPRESSIN [Concomitant]
     Indication: SEPSIS
     Dosage: UNK, UNKNOWN
     Route: 065
     Dates: start: 20070724, end: 20070727

REACTIONS (1)
  - THROMBOCYTOPENIA [None]
